FAERS Safety Report 7625529-4 (Version None)
Quarter: 2011Q3

REPORT INFORMATION
  Report Type: 
  Country: None (occurrence: None)
  Receive Date: 20110721
  Receipt Date: 20110714
  Transmission Date: 20111222
  Serious: Yes (Death, Other)
  Sender: FDA-Public Use
  Company Number: US-CELGENEUS-163-21880-11052199

PATIENT
  Sex: Male
  Weight: 69.008 kg

DRUGS (3)
  1. REVLIMID [Suspect]
     Indication: MULTIPLE MYELOMA
     Dosage: 10 MILLIGRAM
     Route: 048
     Dates: start: 20110323, end: 20110428
  2. VELCADE [Concomitant]
     Dosage: 2 MILLIGRAM
     Route: 065
     Dates: start: 20110419
  3. DECADRON [Concomitant]
     Dosage: 20 MILLIGRAM
     Route: 065
     Dates: start: 20110520

REACTIONS (3)
  - LEUKAEMIA PLASMACYTIC [None]
  - RIGHT VENTRICULAR FAILURE [None]
  - MULTIPLE MYELOMA [None]
